FAERS Safety Report 20821840 (Version 1)
Quarter: 2022Q2

REPORT INFORMATION
  Report Type: Spontaneous
  Country: CN (occurrence: None)
  Receive Date: 20220512
  Receipt Date: 20220512
  Transmission Date: 20220721
  Serious: Yes (Other)
  Sender: FDA-Public Use
  Company Number: 2022A155178

PATIENT
  Age: 27394 Day
  Sex: Female
  Weight: 70 kg

DRUGS (4)
  1. DAPAGLIFLOZIN [Suspect]
     Active Substance: DAPAGLIFLOZIN
     Indication: Blood glucose increased
     Route: 048
     Dates: start: 20220218, end: 20220412
  2. METFORMIN HYDROCHLORIDE\PIOGLITAZONE HYDROCHLORIDE [Concomitant]
     Active Substance: METFORMIN HYDROCHLORIDE\PIOGLITAZONE HYDROCHLORIDE
     Dates: start: 202202
  3. ASPART 30 INSULIN [Concomitant]
     Dosage: 15U IN THE MORNING AND 14U IN THE EVENING
     Dates: start: 202202
  4. ASPART 30 INSULIN [Concomitant]
     Dosage: 12U IN THE MORNING AND 12U IN THE EVENING

REACTIONS (2)
  - Blood creatinine increased [Not Recovered/Not Resolved]
  - Chronic kidney disease [Unknown]

NARRATIVE: CASE EVENT DATE: 20220412
